FAERS Safety Report 11959136 (Version 1)
Quarter: 2016Q1

REPORT INFORMATION
  Report Type: Spontaneous
  Country: CO (occurrence: CO)
  Receive Date: 20160126
  Receipt Date: 20160126
  Transmission Date: 20160526
  Serious: Yes (Hospitalization)
  Sender: FDA-Public Use
  Company Number: PHHY2016CO006274

PATIENT
  Age: 32 Year
  Sex: Female

DRUGS (4)
  1. GILENYA [Suspect]
     Active Substance: FINGOLIMOD HYDROCHLORIDE
     Indication: MULTIPLE SCLEROSIS
     Dosage: UNK
     Route: 065
     Dates: start: 201505
  2. PREGABALIN. [Concomitant]
     Active Substance: PREGABALIN
     Indication: NEURALGIA
     Dosage: 150 MG, Q12H
     Route: 065
  3. TOPIRAMATE. [Concomitant]
     Active Substance: TOPIRAMATE
     Indication: EPILEPSY
     Dosage: 100 MG, Q12H
     Route: 065
  4. ZOPLICONE [Concomitant]
     Active Substance: ZOPICLONE
     Indication: SLEEP DISORDER
     Route: 065

REACTIONS (16)
  - Hemiparesis [Unknown]
  - Abdominal pain [Unknown]
  - Stupor [Unknown]
  - Cyanosis [Unknown]
  - Somnolence [Unknown]
  - Sepsis [Unknown]
  - Acute kidney injury [Recovered/Resolved]
  - Pyrexia [Unknown]
  - Oesophageal candidiasis [Unknown]
  - Blastocystis infection [Unknown]
  - Abdominal distension [Unknown]
  - Immunosuppression [Unknown]
  - Colitis ulcerative [Unknown]
  - Diarrhoea [Recovered/Resolved]
  - General physical health deterioration [Unknown]
  - Dehydration [Unknown]

NARRATIVE: CASE EVENT DATE: 201512
